FAERS Safety Report 8978602 (Version 2)
Quarter: 2013Q1

REPORT INFORMATION
  Report Type: Spontaneous
  Country: ES (occurrence: ES)
  Receive Date: 20121220
  Receipt Date: 20130203
  Transmission Date: 20140127
  Serious: Yes (Life-Threatening, Other)
  Sender: FDA-Public Use
  Company Number: ES-UCBSA-073391

PATIENT
  Age: 76 Year
  Sex: Male

DRUGS (6)
  1. NEUPRO [Suspect]
     Indication: PARKINSON^S DISEASE
     Route: 062
     Dates: start: 20110117, end: 20121127
  2. SINEMET [Interacting]
     Indication: PARKINSON^S DISEASE
     Route: 048
     Dates: start: 20090703
  3. AVODART [Concomitant]
     Dosage: UNKNOWN DOSE
  4. ZYLORIC [Concomitant]
     Dosage: UNKNOWN DOSE
  5. KREON [Concomitant]
     Dosage: UNKNOWN DOSE
  6. OPTOVITE [Concomitant]
     Dosage: UNKNOWN DOSE

REACTIONS (3)
  - Impulse-control disorder [Unknown]
  - Hypersexuality [Unknown]
  - Drug interaction [Unknown]
